FAERS Safety Report 23968529 (Version 1)
Quarter: 2024Q2

REPORT INFORMATION
  Report Type: Spontaneous
  Country: US (occurrence: None)
  Receive Date: 20240612
  Receipt Date: 20240612
  Transmission Date: 20240716
  Serious: Yes (Other)
  Sender: FDA-Public Use
  Company Number: None

PATIENT
  Sex: Male

DRUGS (1)
  1. XDEMVY [Suspect]
     Active Substance: LOTILANER
     Dosage: FREQ: INSTILL 1 DROP BY OPHTHALMIC ROUTE TWICE DAILY FOR 6 WEEKS INTO BOTH EYES?
     Route: 047

REACTIONS (1)
  - Myocardial infarction [None]
